FAERS Safety Report 6633343-1 (Version None)
Quarter: 2010Q1

REPORT INFORMATION
  Report Type: 
  Country: None (occurrence: None)
  Receive Date: 20100312
  Receipt Date: 20100305
  Transmission Date: 20100710
  Serious: Yes (Hospitalization)
  Sender: FDA-Public Use
  Company Number: RO-ROCHE-688997

PATIENT
  Sex: Female
  Weight: 50 kg

DRUGS (6)
  1. PEG-INTERFERON ALFA 2A (RO 25-8310) [Suspect]
     Indication: HEPATITIS C
     Route: 058
     Dates: start: 20100119
  2. RIBAVIRIN [Suspect]
     Indication: HEPATITIS C
     Route: 048
     Dates: start: 20100119
  3. MABTHERA [Concomitant]
     Route: 042
     Dates: start: 20100129
  4. METAMIZOLE SODIUM [Concomitant]
     Dosage: FREQUENCY: OCCASIONALLY; DRUG REPORTED AS METAMIZOLE
     Route: 042
     Dates: start: 20100219, end: 20100219
  5. DEXAMETHASONE [Concomitant]
     Dates: start: 20100220, end: 20100222
  6. CLORFENAMINA [Concomitant]
     Dates: start: 20100220, end: 20100222

REACTIONS (1)
  - RENAL FAILURE ACUTE [None]
